FAERS Safety Report 18915685 (Version 3)
Quarter: 2021Q3

REPORT INFORMATION
  Report Type: Spontaneous
  Country: US (occurrence: US)
  Receive Date: 20210219
  Receipt Date: 20210721
  Transmission Date: 20211014
  Serious: No
  Sender: FDA-Public Use
  Company Number: US-SA-2021SA050020

PATIENT
  Sex: Male
  Weight: 117.9 kg

DRUGS (5)
  1. RANITIDINE HCL [Concomitant]
     Active Substance: RANITIDINE HYDROCHLORIDE
     Dosage: UNK
  2. CIALIS [Concomitant]
     Active Substance: TADALAFIL
  3. RANIDINE [RANITIDINE] [Concomitant]
     Dosage: 150MG
  4. DUPIXENT [Suspect]
     Active Substance: DUPILUMAB
     Indication: DERMATITIS ATOPIC
     Dosage: 300 MG, QOW
     Route: 058
     Dates: start: 201906
  5. LISINOPRIL. [Concomitant]
     Active Substance: LISINOPRIL
     Dosage: UNK; POWDER

REACTIONS (2)
  - Pruritus [Unknown]
  - Therapeutic response shortened [Unknown]
